FAERS Safety Report 4581283-4 (Version None)
Quarter: 2005Q1

REPORT INFORMATION
  Report Type: 
  Country: None (occurrence: None)
  Receive Date: 20050214
  Receipt Date: 20040917
  Transmission Date: 20050727
  Serious: No
  Sender: FDA-Public Use
  Company Number: US-GLAXOSMITHKLINE-A0526204A

PATIENT
  Age: 59 Year
  Sex: Female
  Weight: 59.1 kg

DRUGS (3)
  1. LAMICTAL [Suspect]
     Indication: BIPOLAR DISORDER
     Dosage: 100MG PER DAY
     Route: 048
     Dates: start: 20040301
  2. NO CONCURRENT MEDICATION [Concomitant]
  3. UNSPECIFIED MEDICATION [Concomitant]
     Indication: AGITATION
     Dosage: .5TAB AS REQUIRED

REACTIONS (5)
  - ARTHRALGIA [None]
  - FLANK PAIN [None]
  - GROIN PAIN [None]
  - LYMPHADENOPATHY [None]
  - RASH [None]
